FAERS Safety Report 7489973-0 (Version None)
Quarter: 2011Q2

REPORT INFORMATION
  Report Type: 
  Country: None (occurrence: None)
  Receive Date: 20110519
  Receipt Date: 20110506
  Transmission Date: 20111010
  Serious: Yes (Hospitalization)
  Sender: FDA-Public Use
  Company Number: FR-JNJFOC-20110504614

PATIENT
  Age: 66 Year
  Sex: Female

DRUGS (2)
  1. LEVOFLOXACIN [Suspect]
     Indication: SINUSITIS
     Route: 048
     Dates: start: 20110407, end: 20110413
  2. PREVISCAN (FLUINDIONE) [Interacting]
     Indication: ATRIAL FIBRILLATION
     Route: 048
     Dates: start: 20101001, end: 20110413

REACTIONS (3)
  - DRUG INTERACTION [None]
  - INTERNATIONAL NORMALISED RATIO INCREASED [None]
  - MYALGIA [None]
